FAERS Safety Report 25628626 (Version 6)
Quarter: 2025Q4

REPORT INFORMATION
  Report Type: Report from Study
  Country: US (occurrence: US)
  Receive Date: 20250731
  Receipt Date: 20251217
  Transmission Date: 20260117
  Serious: Yes (Hospitalization, Other)
  Sender: TAKEDA
  Company Number: US-TAKEDA-2025TUS058000

PATIENT
  Sex: Female

DRUGS (4)
  1. TEDUGLUTIDE [Suspect]
     Active Substance: TEDUGLUTIDE
     Indication: Short-bowel syndrome
     Dosage: 3 MILLIGRAM, QD
     Dates: start: 202506
  2. TEDUGLUTIDE [Suspect]
     Active Substance: TEDUGLUTIDE
     Dosage: 0.3 MILLILITER, QD
  3. TEDUGLUTIDE [Suspect]
     Active Substance: TEDUGLUTIDE
     Dosage: 3 MILLIGRAM, QD
  4. TEDUGLUTIDE [Suspect]
     Active Substance: TEDUGLUTIDE

REACTIONS (19)
  - Gastrointestinal stoma output increased [Unknown]
  - Abdominal abscess [Unknown]
  - Gastritis [Unknown]
  - Dehydration [Unknown]
  - Wound infection [Unknown]
  - Stoma site complication [Not Recovered/Not Resolved]
  - Abdominal discomfort [Recovered/Resolved]
  - Dyspepsia [Unknown]
  - Eructation [Unknown]
  - Weight decreased [Unknown]
  - Drug ineffective [Unknown]
  - Stomal hernia [Unknown]
  - Flatulence [Recovering/Resolving]
  - Nausea [Recovering/Resolving]
  - Abdominal pain upper [Recovering/Resolving]
  - Abdominal pain [Unknown]
  - Haemorrhage [Unknown]
  - Stoma site ulcer [Unknown]
  - Stoma site pain [Unknown]
